FAERS Safety Report 21632779 (Version 6)
Quarter: 2023Q1

REPORT INFORMATION
  Report Type: Report from Study
  Country: PE (occurrence: PE)
  Receive Date: 20221123
  Receipt Date: 20230222
  Transmission Date: 20230418
  Serious: Yes (Other)
  Sender: FDA-Public Use
  Company Number: PE-002147023-NVSC2022PE252767

PATIENT
  Age: 63 Year
  Sex: Female

DRUGS (1)
  1. KISQALI [Suspect]
     Active Substance: RIBOCICLIB
     Indication: Breast cancer
     Dosage: 600 MG, QD
     Route: 048
     Dates: start: 20221030

REACTIONS (27)
  - Bradycardia [Unknown]
  - Diabetes mellitus [Unknown]
  - Thrombosis [Unknown]
  - Renal pain [Unknown]
  - Gait disturbance [Unknown]
  - Eye swelling [Recovering/Resolving]
  - Pain in extremity [Unknown]
  - Arthropathy [Unknown]
  - Hypoaesthesia eye [Unknown]
  - Tachycardia [Unknown]
  - Anxiety [Unknown]
  - Eyelid disorder [Unknown]
  - Chest discomfort [Unknown]
  - Balance disorder [Unknown]
  - Hypersensitivity [Recovering/Resolving]
  - Varicose vein [Unknown]
  - Blood glucose increased [Unknown]
  - Skin disorder [Unknown]
  - Urticaria [Unknown]
  - Scratch [Unknown]
  - Wound [Unknown]
  - Swelling [Unknown]
  - Peripheral swelling [Unknown]
  - Headache [Recovered/Resolved]
  - Pruritus [Unknown]
  - Rash [Unknown]
  - Dry skin [Unknown]

NARRATIVE: CASE EVENT DATE: 20221107
